FAERS Safety Report 8277111-6 (Version None)
Quarter: 2012Q2

REPORT INFORMATION
  Report Type: 
  Country: None (occurrence: None)
  Receive Date: 20120412
  Receipt Date: 20120319
  Transmission Date: 20120825
  Serious: Yes (Hospitalization, Other)
  Sender: FDA-Public Use
  Company Number: US-ROCHE-1016847

PATIENT
  Sex: Female
  Weight: 59.02 kg

DRUGS (7)
  1. ACCUTANE [Suspect]
     Dates: start: 20030101, end: 20040101
  2. PROZAC [Concomitant]
  3. ACCUTANE [Suspect]
     Indication: ACNE
     Route: 065
     Dates: start: 19930101, end: 19940101
  4. RITALIN [Concomitant]
  5. PERMAX [Concomitant]
  6. KLONOPIN [Concomitant]
  7. ALBUTEROL [Concomitant]

REACTIONS (14)
  - CONVULSION [None]
  - CROHN'S DISEASE [None]
  - SUICIDAL IDEATION [None]
  - ANAEMIA [None]
  - FIBROMYALGIA [None]
  - PARAESTHESIA [None]
  - HEADACHE [None]
  - BIPOLAR DISORDER [None]
  - INFLAMMATORY BOWEL DISEASE [None]
  - ARTHRITIS [None]
  - COLITIS ULCERATIVE [None]
  - ARTHRALGIA [None]
  - DEPRESSION [None]
  - IRRITABLE BOWEL SYNDROME [None]
